FAERS Safety Report 14246780 (Version 2)
Quarter: 2017Q4

REPORT INFORMATION
  Report Type: Spontaneous
  Country: US (occurrence: US)
  Receive Date: 20171204
  Receipt Date: 20171221
  Transmission Date: 20180321
  Serious: Yes (Hospitalization)
  Sender: FDA-Public Use
  Company Number: US-PFIZER INC-2017515648

PATIENT
  Age: 58 Year
  Sex: Female
  Weight: 121 kg

DRUGS (2)
  1. VANCOCIN [Suspect]
     Active Substance: VANCOMYCIN HYDROCHLORIDE
     Indication: CELLULITIS
     Dosage: 1.75 G, UNK
  2. VANCOCIN [Suspect]
     Active Substance: VANCOMYCIN HYDROCHLORIDE
     Dosage: 1.75 G, 2X/DAY (Q12H )
     Route: 042
     Dates: start: 20171128, end: 20171128

REACTIONS (3)
  - Pruritus [Recovered/Resolved]
  - Red man syndrome [Recovered/Resolved]
  - Erythema [Unknown]

NARRATIVE: CASE EVENT DATE: 20171128
